FAERS Safety Report 5023494-X (Version None)
Quarter: 2006Q2

REPORT INFORMATION
  Report Type: 
  Country: None (occurrence: None)
  Receive Date: 20060606
  Receipt Date: 20060530
  Transmission Date: 20061013
  Serious: Yes (Hospitalization)
  Sender: FDA-Public Use
  Company Number: FRWYE533005APR06

PATIENT
  Age: 78 Year
  Sex: Male

DRUGS (3)
  1. TAZOCILLINE [Suspect]
     Dosage: 4 G 1X PER 1 DAY INTRAVENOUS
     Route: 042
     Dates: start: 20060301, end: 20060314
  2. VANCOMYCIN [Suspect]
     Dosage: 1.5 G 2X PER 1 DAY INTRAVENOUS
     Route: 042
     Dates: start: 20060301, end: 20060313
  3. GENTAMICIN [Concomitant]

REACTIONS (6)
  - BLOOD CREATININE INCREASED [None]
  - BLOOD UREA INCREASED [None]
  - EOSINOPHILIA [None]
  - LEUKOCYTOSIS [None]
  - PYREXIA [None]
  - URINE OUTPUT DECREASED [None]
